FAERS Safety Report 9405101 (Version 1)
Quarter: 2013Q3

REPORT INFORMATION
  Report Type: Report from Study
  Country: FR (occurrence: FR)
  Receive Date: 20130717
  Receipt Date: 20130717
  Transmission Date: 20140515
  Serious: Yes (Other)
  Sender: FDA-Public Use
  Company Number: FR-BAYER-2013-086575

PATIENT
  Age: 54 Year
  Sex: Male

DRUGS (3)
  1. REGORAFENIB [Suspect]
     Indication: COLORECTAL CANCER METASTATIC
     Dosage: UNK
     Route: 048
     Dates: start: 20130404, end: 2013
  2. REGORAFENIB [Suspect]
     Indication: COLORECTAL CANCER METASTATIC
     Dosage: DAILY DOSE 120 MG
     Route: 048
     Dates: start: 20130606, end: 20130704
  3. CORTANCYL [Concomitant]
     Indication: BALANCE DISORDER
     Dosage: 40 MG, UNK
     Dates: start: 20130416

REACTIONS (2)
  - Asthenia [Not Recovered/Not Resolved]
  - Colorectal cancer metastatic [None]
